FAERS Safety Report 21701004 (Version 1)
Quarter: 2022Q4

REPORT INFORMATION
  Report Type: Spontaneous
  Country: US (occurrence: None)
  Receive Date: 20221207
  Receipt Date: 20221207
  Transmission Date: 20230112
  Serious: Yes (Hospitalization)
  Sender: FDA-Public Use
  Company Number: None

PATIENT
  Age: 73 Year
  Sex: Male
  Weight: 58.97 kg

DRUGS (3)
  1. ATORVASTATIN [Suspect]
     Active Substance: ATORVASTATIN
     Indication: Hyperlipidaemia
     Dosage: 80 MG PM PO?
     Route: 048
     Dates: start: 20200118, end: 20221009
  2. ATORVASTATIN [Suspect]
     Active Substance: ATORVASTATIN
     Indication: Coronary arterial stent insertion
  3. EZETIMIBE [Suspect]
     Active Substance: EZETIMIBE
     Dosage: 10 MG EVERY DAY PO
     Route: 048

REACTIONS (4)
  - Diarrhoea [None]
  - Acute kidney injury [None]
  - Rhabdomyolysis [None]
  - Hepatic enzyme increased [None]

NARRATIVE: CASE EVENT DATE: 20221009
